FAERS Safety Report 5518006-8 (Version None)
Quarter: 2007Q4

REPORT INFORMATION
  Report Type: 
  Country: None (occurrence: None)
  Receive Date: 20071115
  Receipt Date: 20071112
  Transmission Date: 20080405
  Serious: Yes (Hospitalization)
  Sender: FDA-Public Use
  Company Number: US-BRISTOL-MYERS SQUIBB COMPANY-13978952

PATIENT
  Age: 47 Year
  Sex: Male
  Weight: 85 kg

DRUGS (3)
  1. CISPLATIN [Suspect]
     Indication: SMALL CELL LUNG CANCER STAGE UNSPECIFIED
     Dosage: ADMINISTERED OVER 1 HOUR ON DAY 1 FROM 02-OCT-2007 -20-OCT-2007, CYCLE 3
     Route: 042
     Dates: start: 20070822, end: 20071002
  2. ETOPOSIDE [Suspect]
     Indication: SMALL CELL LUNG CANCER STAGE UNSPECIFIED
     Dosage: ADMINISTERED OVER 1HR,ON DAYS 1-3, CYCLE 3 FROM 02-OCT-2007-04-OCT-2007.
     Route: 042
     Dates: start: 20070822, end: 20071004
  3. SUTENT [Suspect]
     Indication: SMALL CELL LUNG CANCER STAGE UNSPECIFIED
     Dosage: ADMINISTERED ON DAYS 1-14 FROM 02-OCT-2007-07-OCT-2007, CYCLE 3
     Route: 048
     Dates: start: 20070822, end: 20071007

REACTIONS (5)
  - HYPONATRAEMIA [None]
  - INFECTION [None]
  - NEUTROPHIL COUNT DECREASED [None]
  - THROMBOSIS [None]
  - WHITE BLOOD CELL COUNT DECREASED [None]
